FAERS Safety Report 5694235-8 (Version None)
Quarter: 2008Q2

REPORT INFORMATION
  Report Type: 
  Country: None (occurrence: None)
  Receive Date: 20080403
  Receipt Date: 20080403
  Transmission Date: 20081010
  Serious: Yes (Other)
  Sender: FDA-Public Use
  Company Number: None

PATIENT
  Sex: Male
  Weight: 126.1 kg

DRUGS (1)
  1. DIFLUCAN [Suspect]
     Indication: MENINGITIS COCCIDIOIDES
     Dosage: 200 MG 6 X A DAY FOREVER!!!

REACTIONS (2)
  - DIARRHOEA [None]
  - RASH GENERALISED [None]
